FAERS Safety Report 5724322-7 (Version None)
Quarter: 2008Q2

REPORT INFORMATION
  Report Type: 
  Country: None (occurrence: None)
  Receive Date: 20080430
  Receipt Date: 20080421
  Transmission Date: 20081010
  Serious: Yes (Hospitalization, Other)
  Sender: FDA-Public Use
  Company Number: US-PFIZER INC-2008016471

PATIENT
  Age: 69 Year
  Sex: Female

DRUGS (5)
  1. SUTENT [Suspect]
     Indication: METASTATIC RENAL CELL CARCINOMA
     Dosage: DAILY DOSE:25MG
     Route: 048
     Dates: start: 20070420, end: 20080201
  2. VITAMIN B-12 [Concomitant]
  3. CALCIUM [Concomitant]
  4. ZOLOFT [Concomitant]
  5. ASPIRIN [Concomitant]

REACTIONS (1)
  - CEREBRAL INFARCTION [None]
